FAERS Safety Report 24199050 (Version 1)
Quarter: 2024Q3

REPORT INFORMATION
  Report Type: Spontaneous
  Country: US (occurrence: US)
  Receive Date: 20240812
  Receipt Date: 20240812
  Transmission Date: 20241016
  Serious: No
  Sender: JOHNSON AND JOHNSON
  Company Number: US-JNJFOC-20240817504

PATIENT
  Age: 8 Decade
  Sex: Female

DRUGS (10)
  1. OPSUMIT [Suspect]
     Active Substance: MACITENTAN
     Indication: Product used for unknown indication
     Route: 048
  2. OFEV [Suspect]
     Active Substance: NINTEDANIB
     Indication: Pulmonary fibrosis
     Route: 048
     Dates: start: 202205
  3. OFEV [Suspect]
     Active Substance: NINTEDANIB
     Indication: Interstitial lung disease
     Route: 048
  4. OFEV [Suspect]
     Active Substance: NINTEDANIB
     Route: 048
  5. OFEV [Suspect]
     Active Substance: NINTEDANIB
     Route: 048
  6. ADEMPAS [Suspect]
     Active Substance: RIOCIGUAT
     Indication: Pulmonary arterial hypertension
     Dosage: 4.5MG, 1 IN 8 HOUR
     Route: 048
     Dates: start: 202403
  7. ADEMPAS [Suspect]
     Active Substance: RIOCIGUAT
     Dosage: 0.6MG, 1 IN 8 HOUR
     Route: 048
     Dates: start: 202402, end: 2024
  8. TYVASO [Suspect]
     Active Substance: TREPROSTINIL
     Indication: Pulmonary arterial hypertension
     Dosage: 120 MCG, 1 IN 6 HR
     Route: 055
     Dates: start: 202403
  9. TYVASO [Suspect]
     Active Substance: TREPROSTINIL
     Dosage: 80MCG, 1IN 6HR
     Route: 055
     Dates: start: 2024
  10. MYCOPHENOLATE MOFETIL [Concomitant]
     Active Substance: MYCOPHENOLATE MOFETIL
     Indication: Product used for unknown indication

REACTIONS (23)
  - Nausea [Not Recovered/Not Resolved]
  - Dyspnoea exertional [Recovering/Resolving]
  - Diarrhoea [Recovered/Resolved]
  - Chest pain [Not Recovered/Not Resolved]
  - Dizziness [Not Recovered/Not Resolved]
  - Asthenia [Unknown]
  - Weight decreased [Unknown]
  - Headache [Not Recovered/Not Resolved]
  - Dry mouth [Not Recovered/Not Resolved]
  - Hiatus hernia [Not Recovered/Not Resolved]
  - Cough [Not Recovered/Not Resolved]
  - Gastrooesophageal reflux disease [Not Recovered/Not Resolved]
  - Anxiety [Not Recovered/Not Resolved]
  - Depression [Not Recovered/Not Resolved]
  - Respiratory tract congestion [Not Recovered/Not Resolved]
  - Infection [Not Recovered/Not Resolved]
  - Fatigue [Not Recovered/Not Resolved]
  - Weight fluctuation [Not Recovered/Not Resolved]
  - Peripheral swelling [Not Recovered/Not Resolved]
  - Joint swelling [Unknown]
  - Arthritis [Unknown]
  - Feeling abnormal [Recovering/Resolving]
  - Product dose omission issue [Unknown]

NARRATIVE: CASE EVENT DATE: 20220501
